FAERS Safety Report 24249173 (Version 3)
Quarter: 2025Q2

REPORT INFORMATION
  Report Type: Report from Study
  Country: CL (occurrence: CL)
  Receive Date: 20240826
  Receipt Date: 20250603
  Transmission Date: 20250716
  Serious: Yes (Life-Threatening, Other)
  Sender: NOVARTIS
  Company Number: CL-002147023-NVSC2023CL259985

PATIENT
  Age: 33 Year
  Sex: Female

DRUGS (10)
  1. KISQALI [Suspect]
     Active Substance: RIBOCICLIB SUCCINATE
     Indication: Breast cancer
     Dosage: 600 MG, QD (3X 200 MG)
     Route: 048
     Dates: start: 20231118
  2. KISQALI [Suspect]
     Active Substance: RIBOCICLIB SUCCINATE
     Dosage: 600 MG, QD (3 DOSAGE FORM)
     Route: 048
  3. KISQALI [Suspect]
     Active Substance: RIBOCICLIB SUCCINATE
     Dosage: 600 MG, QD (3 TABLETS OF 200 MG)
     Route: 048
     Dates: start: 20231217
  4. KISQALI [Suspect]
     Active Substance: RIBOCICLIB SUCCINATE
     Dosage: 600 MG (3X 200 MG), QD (CYCLE 9)
     Route: 048
     Dates: start: 20240717
  5. KISQALI [Suspect]
     Active Substance: RIBOCICLIB SUCCINATE
     Route: 065
     Dates: start: 20240719
  6. KISQALI [Suspect]
     Active Substance: RIBOCICLIB SUCCINATE
     Dosage: 600 MG, QD
     Route: 048
  7. KISQALI [Suspect]
     Active Substance: RIBOCICLIB SUCCINATE
     Dosage: 600 MG (3X 200 MG), QD (CYCLE 9)
     Route: 048
     Dates: start: 20240821
  8. KISQALI [Suspect]
     Active Substance: RIBOCICLIB SUCCINATE
     Dosage: 600 MG, QD (3 UNITS)
     Route: 048
     Dates: start: 20241118
  9. LETROZOLE [Suspect]
     Active Substance: LETROZOLE
     Indication: Product used for unknown indication
     Route: 065
  10. CALCIUM [Concomitant]
     Active Substance: CALCIUM
     Indication: Product used for unknown indication
     Route: 065

REACTIONS (30)
  - Abdominal discomfort [Unknown]
  - Metastases to bone [Unknown]
  - Kidney infection [Unknown]
  - Renal pain [Unknown]
  - Affect lability [Unknown]
  - Pyrexia [Unknown]
  - Nausea [Unknown]
  - Dizziness [Unknown]
  - Asthenia [Unknown]
  - Nasopharyngitis [Unknown]
  - Throat clearing [Unknown]
  - Pain [Unknown]
  - Malaise [Unknown]
  - Vomiting [Unknown]
  - Diarrhoea [Unknown]
  - Fear [Unknown]
  - Weight decreased [Unknown]
  - Feelings of worthlessness [Unknown]
  - Urinary tract infection [Unknown]
  - Dysuria [Unknown]
  - Chromaturia [Unknown]
  - Headache [Unknown]
  - Anxiety [Unknown]
  - Urine odour abnormal [Unknown]
  - Lactation puerperal increased [Unknown]
  - Cough [Unknown]
  - Dysphonia [Unknown]
  - Throat tightness [Unknown]
  - Feeling cold [Unknown]
  - Gastroenteritis viral [Unknown]
